FAERS Safety Report 7507304-4 (Version None)
Quarter: 2011Q2

REPORT INFORMATION
  Report Type: 
  Country: None (occurrence: None)
  Receive Date: 20110526
  Receipt Date: 20110523
  Transmission Date: 20111010
  Serious: Yes (Hospitalization, Other)
  Sender: FDA-Public Use
  Company Number: US-PFIZER INC-2011044432

PATIENT
  Sex: Female

DRUGS (5)
  1. KLONOPIN [Concomitant]
     Indication: ANXIETY
     Dosage: UNK
     Dates: start: 20070101
  2. LEXAPRO [Concomitant]
     Indication: DEPRESSION
     Dosage: UNK
     Dates: start: 20070101, end: 20070101
  3. CHANTIX [Suspect]
     Dosage: CONTINUING PACK
     Dates: start: 20080401, end: 20100223
  4. ABILIFY [Concomitant]
     Indication: DEPRESSION
     Dosage: UNK
     Dates: start: 20070101, end: 20080101
  5. CHANTIX [Suspect]
     Indication: SMOKING CESSATION THERAPY
     Dosage: STARTER PACK
     Dates: start: 20071201, end: 20071201

REACTIONS (9)
  - SUICIDE ATTEMPT [None]
  - AGGRESSION [None]
  - INTENTIONAL OVERDOSE [None]
  - CONVULSION [None]
  - HALLUCINATION [None]
  - LOSS OF CONSCIOUSNESS [None]
  - VERTIGO [None]
  - DEPRESSION [None]
  - ANXIETY [None]
